FAERS Safety Report 9588357 (Version 1)
Quarter: 2013Q4

REPORT INFORMATION
  Report Type: Spontaneous
  Country: US (occurrence: US)
  Receive Date: 20131003
  Receipt Date: 20131003
  Transmission Date: 20140711
  Serious: Yes (Hospitalization)
  Sender: FDA-Public Use
  Company Number: US-AMGEN-USASP2012063746

PATIENT
  Age: 42 Year
  Sex: Male

DRUGS (1)
  1. ENBREL [Suspect]
     Indication: ANKYLOSING SPONDYLITIS
     Dosage: 50 MG, QWK
     Dates: start: 20050101

REACTIONS (4)
  - Pneumonia [Recovered/Resolved]
  - Visual acuity reduced [Recovered/Resolved]
  - Orbital cyst [Recovered/Resolved]
  - Ankylosing spondylitis [Not Recovered/Not Resolved]
